FAERS Safety Report 20807178 (Version 3)
Quarter: 2022Q2

REPORT INFORMATION
  Report Type: Spontaneous
  Country: PR (occurrence: PR)
  Receive Date: 20220510
  Receipt Date: 20220613
  Transmission Date: 20220721
  Serious: No
  Sender: FDA-Public Use
  Company Number: PR-PFIZER INC-202200582278

PATIENT
  Age: 33 Year
  Sex: Female
  Weight: 68.04 kg

DRUGS (1)
  1. GENOTROPIN [Suspect]
     Active Substance: SOMATROPIN
     Indication: Hypothalamo-pituitary disorder
     Dosage: 0.7 EVERYDAY
     Dates: start: 1997

REACTIONS (4)
  - Device use error [Unknown]
  - Device information output issue [Unknown]
  - Device failure [Unknown]
  - Expired device used [Unknown]

NARRATIVE: CASE EVENT DATE: 20220401
